FAERS Safety Report 9405204 (Version 1)
Quarter: 2013Q3

REPORT INFORMATION
  Report Type: Report from Study
  Country: DE (occurrence: DE)
  Receive Date: 20130717
  Receipt Date: 20130717
  Transmission Date: 20140515
  Serious: Yes (Other)
  Sender: FDA-Public Use
  Company Number: DE-TEVA-418710ISR

PATIENT
  Age: 43 Year
  Sex: Female

DRUGS (3)
  1. PACLITAXEL [Suspect]
     Indication: OVARIAN CANCER
     Dosage: 350 MILLIGRAM DAILY; DATE OF LAST DOSE PRIOR TO SAE: 18/JUN/2013
     Route: 042
     Dates: start: 20130227, end: 20130626
  2. CARBOPLATIN [Suspect]
     Indication: OVARIAN CANCER
     Dosage: 910 MILLIGRAM DAILY; DATE OF LAST DOSE PRIOR TO SAE: 18/JUN/2013
     Route: 042
     Dates: start: 20130227, end: 20130626
  3. BEVACIZUMAB [Suspect]
     Indication: OVARIAN CANCER
     Dosage: 1605 MILLIGRAM DAILY; DATE OF LAST DOSE PRIOR TO SAE: 18/JUN/2013
     Route: 042
     Dates: start: 20130227

REACTIONS (1)
  - Impaired healing [Not Recovered/Not Resolved]
